FAERS Safety Report 8774799 (Version 1)
Quarter: 2012Q4

REPORT INFORMATION
  Report Type: 
  Country: US (occurrence: US)
  Receive Date: 20120910
  Receipt Date: 20120910
  Transmission Date: 20130627
  Serious: No
  Sender: FDA-Public Use
  Company Number: US-PFIZER INC-2012219867

PATIENT
  Age: 43 Year
  Sex: Female
  Weight: 90.7 kg

DRUGS (4)
  1. ADVIL ALLERGY AND CONGESTION RELIEF [Suspect]
     Indication: COUGH
     Dosage: UNK
     Dates: start: 20120905
  2. ADVIL ALLERGY AND CONGESTION RELIEF [Suspect]
     Indication: SINUS CONGESTION
  3. ADVIL ALLERGY AND CONGESTION RELIEF [Suspect]
     Indication: NASAL CONGESTION
  4. PROTONIX [Concomitant]
     Indication: ULCER
     Dosage: 40 mg, two times a day

REACTIONS (2)
  - Somnolence [Not Recovered/Not Resolved]
  - Fatigue [Not Recovered/Not Resolved]
